FAERS Safety Report 4439012-0 (Version None)
Quarter: 2004Q3

REPORT INFORMATION
  Report Type: 
  Country: None (occurrence: None)
  Receive Date: 20040901
  Receipt Date: 20040825
  Transmission Date: 20050211
  Serious: Yes (Other)
  Sender: FDA-Public Use
  Company Number: JP-MERCK-0408USA01987

PATIENT
  Age: 69 Year
  Sex: Male

DRUGS (1)
  1. PEPCID [Suspect]
     Route: 065

REACTIONS (8)
  - ACANTHOSIS [None]
  - ASPARTATE AMINOTRANSFERASE INCREASED [None]
  - EOSINOPHILIA [None]
  - ERYTHEMA MULTIFORME [None]
  - EYELID OEDEMA [None]
  - GAMMA-GLUTAMYLTRANSFERASE INCREASED [None]
  - HEPATIC FUNCTION ABNORMAL [None]
  - NORMAL PRESSURE HYDROCEPHALUS [None]
